FAERS Safety Report 12299066 (Version 2)
Quarter: 2016Q2

REPORT INFORMATION
  Report Type: Spontaneous
  Country: TR (occurrence: TR)
  Receive Date: 20160425
  Receipt Date: 20160505
  Transmission Date: 20160815
  Serious: Yes (Other)
  Sender: FDA-Public Use
  Company Number: TR-SUN PHARMACEUTICAL INDUSTRIES LTD-2016RR-115178

PATIENT
  Age: 24 Year
  Sex: Male

DRUGS (3)
  1. FOSAMAX [Suspect]
     Active Substance: ALENDRONATE SODIUM
     Indication: OSTEOPOROSIS
     Dosage: 70 MG ONCE A WEEK
     Route: 048
  2. DEFLAZACORT [Concomitant]
     Active Substance: DEFLAZACORT
     Indication: MYASTHENIA GRAVIS
     Dosage: 40 MG, DAILY
     Route: 048
  3. CALCIUM/VITAMIN D3 [Concomitant]
     Indication: OSTEOPOROSIS
     Route: 048

REACTIONS (1)
  - Myasthenia gravis [Recovered/Resolved]
